FAERS Safety Report 10151191 (Version 1)
Quarter: 2014Q2

REPORT INFORMATION
  Report Type: Spontaneous
  Country: US (occurrence: US)
  Receive Date: 20140502
  Receipt Date: 20140502
  Transmission Date: 20141212
  Serious: No
  Sender: FDA-Public Use
  Company Number: US-ASTRAZENECA-2014SE14884

PATIENT
  Age: 80 Year
  Sex: Female

DRUGS (4)
  1. PRILOSEC OTC [Suspect]
     Indication: DYSPEPSIA
     Route: 048
  2. PRILOSEC OTC [Suspect]
     Indication: CARDIAC FAILURE CONGESTIVE
     Route: 048
  3. PRILOSEC OTC [Suspect]
     Indication: DYSPEPSIA
     Route: 048
  4. ALL OTHER THERAPEUTIC PRODUCTS [Concomitant]

REACTIONS (2)
  - Dyspepsia [Unknown]
  - Off label use [Unknown]
